FAERS Safety Report 7506053-6 (Version None)
Quarter: 2011Q2

REPORT INFORMATION
  Report Type: 
  Country: None (occurrence: None)
  Receive Date: 20110526
  Receipt Date: 20110516
  Transmission Date: 20111010
  Serious: Yes (Other)
  Sender: FDA-Public Use
  Company Number: PHHY2011US14461

PATIENT
  Sex: Male
  Weight: 82.086 kg

DRUGS (9)
  1. TERAZOSIN HCL [Concomitant]
     Indication: BLADDER DYSFUNCTION
     Dosage: 5 MG, QHS
     Route: 048
  2. BACLOFEN [Concomitant]
     Indication: MUSCLE SPASTICITY
     Dosage: 10 MG BID AND 30 MG QHS
     Route: 048
  3. NEURONTIN [Concomitant]
     Indication: PAIN
     Dosage: 300 MG BID AND 600 MG QHS
     Dates: start: 20100101
  4. ZOCOR [Concomitant]
     Indication: BLOOD CHOLESTEROL INCREASED
     Dosage: 100 MG, QD
     Route: 048
  5. SOLU-MEDROL [Concomitant]
     Dosage: 1000 MG, MONTHLY
  6. ZANAFLEX [Concomitant]
     Indication: MUSCLE SPASTICITY
     Dosage: 2 MG, QHS
  7. GILENYA [Suspect]
     Indication: RELAPSING-REMITTING MULTIPLE SCLEROSIS
     Dosage: 0.5 MG, QD
     Route: 048
     Dates: start: 20110210
  8. ZOLOFT [Concomitant]
     Indication: DEPRESSED MOOD
     Dosage: 50 MG, QD
     Route: 048
  9. PROVIGIL [Concomitant]
     Dosage: 1 DF, DAILY

REACTIONS (8)
  - URINARY TRACT INFECTION [None]
  - PERIPHERAL COLDNESS [None]
  - PAIN IN EXTREMITY [None]
  - ERYTHEMA OF EYELID [None]
  - DYSURIA [None]
  - FEELING ABNORMAL [None]
  - MUSCULAR WEAKNESS [None]
  - VISION BLURRED [None]
